FAERS Safety Report 5146386-4 (Version None)
Quarter: 2006Q4

REPORT INFORMATION
  Report Type: 
  Country: None (occurrence: None)
  Receive Date: 20061108
  Receipt Date: 20060628
  Transmission Date: 20070319
  Serious: Yes (Hospitalization)
  Sender: FDA-Public Use
  Company Number: JP-BOEHRINGER INGELHEIM PHARMACEUTICALS, INC.-2006-BP-07418NB

PATIENT
  Sex: Male

DRUGS (9)
  1. MICARDIS [Suspect]
     Indication: HYPERTENSION
     Route: 048
  2. LIPITOR [Suspect]
     Route: 048
  3. DORNER [Suspect]
     Route: 048
  4. ACTONEL [Suspect]
     Route: 048
  5. NORVASC [Concomitant]
     Route: 048
  6. OMEPRAL [Concomitant]
     Route: 048
  7. GASMOTIN [Concomitant]
     Route: 048
  8. ASPIRIN [Concomitant]
     Route: 048
  9. PREDONINE [Concomitant]
     Route: 048

REACTIONS (1)
  - INTERSTITIAL LUNG DISEASE [None]
